FAERS Safety Report 17468663 (Version 11)
Quarter: 2023Q1

REPORT INFORMATION
  Report Type: Spontaneous
  Country: TW (occurrence: TW)
  Receive Date: 20200227
  Receipt Date: 20230216
  Transmission Date: 20230417
  Serious: Yes (Death, Other)
  Sender: FDA-Public Use
  Company Number: TW-SA-2020SA045375

PATIENT
  Age: 35 Year
  Sex: Female

DRUGS (9)
  1. MYOZYME [Suspect]
     Active Substance: ALGLUCOSIDASE ALFA
     Dosage: 1600 MG, QOW
     Route: 041
  2. MYOZYME [Suspect]
     Active Substance: ALGLUCOSIDASE ALFA
     Dosage: 32 DF, QW
     Route: 041
  3. MYOZYME [Suspect]
     Active Substance: ALGLUCOSIDASE ALFA
     Dosage: 35 DF, QOW
     Route: 041
  4. MYOZYME [Suspect]
     Active Substance: ALGLUCOSIDASE ALFA
     Dosage: 32.16 MG/KG, QOW
     Route: 041
     Dates: end: 202002
  5. MYOZYME [Suspect]
     Active Substance: ALGLUCOSIDASE ALFA
     Dosage: 32.16 MG/KG, QW
     Route: 041
     Dates: start: 2020, end: 20200608
  6. MYOZYME [Suspect]
     Active Substance: ALGLUCOSIDASE ALFA
     Dosage: 32.16 MG/KG, QOW
     Route: 041
     Dates: start: 202006, end: 2020
  7. MYOZYME [Suspect]
     Active Substance: ALGLUCOSIDASE ALFA
     Dosage: 32.16 MG/KG, QW
     Route: 041
     Dates: start: 2020
  8. MYOZYME [Suspect]
     Active Substance: ALGLUCOSIDASE ALFA
     Dosage: 32.16 MG/KG, QW
     Route: 042
     Dates: start: 20210201, end: 20210201
  9. MYOZYME [Suspect]
     Active Substance: ALGLUCOSIDASE ALFA
     Dosage: 18.67 MG/KG, QOW
     Route: 042
     Dates: start: 2021, end: 20210415

REACTIONS (16)
  - Cardiac arrest [Fatal]
  - Fall [Unknown]
  - Gait disturbance [Unknown]
  - Off label use [Unknown]
  - Skin burning sensation [Recovering/Resolving]
  - Pain [Not Recovered/Not Resolved]
  - Muscular weakness [Not Recovered/Not Resolved]
  - Dyspnoea [Recovering/Resolving]
  - Gastroenteritis [Unknown]
  - Uterine leiomyoma [Unknown]
  - Diarrhoea [Unknown]
  - Urticaria [Recovering/Resolving]
  - Rash [Recovering/Resolving]
  - Pulmonary function test abnormal [Unknown]
  - Condition aggravated [Unknown]
  - Heavy menstrual bleeding [Not Recovered/Not Resolved]

NARRATIVE: CASE EVENT DATE: 20080101
